FAERS Safety Report 23505679 (Version 3)
Quarter: 2024Q3

REPORT INFORMATION
  Report Type: Spontaneous
  Country: CA (occurrence: CA)
  Receive Date: 20240209
  Receipt Date: 20240711
  Transmission Date: 20241017
  Serious: Yes (Other)
  Sender: CELLTRION
  Company Number: CA-CELLTRION INC.-2024CA003072

PATIENT

DRUGS (6)
  1. INFLECTRA [Suspect]
     Active Substance: INFLIXIMAB-DYYB
     Indication: Colitis ulcerative
     Dosage: 10 MG/KG, AT 0, 1 4 WEEKS, THEN EVERY 8 WEEKS
     Route: 042
     Dates: start: 20220316
  2. INFLECTRA [Suspect]
     Active Substance: INFLIXIMAB-DYYB
     Dosage: 10 MG/KG, AT 0, 1 4 WEEKS, THEN EVERY 8 WEEKS
     Route: 042
     Dates: start: 20231208
  3. INFLECTRA [Suspect]
     Active Substance: INFLIXIMAB-DYYB
     Dosage: 10 MG/KG, AT 0, 1 4 WEEKS, THEN EVERY 8 WEEKS (716 MG, 7 WEEKS AND 6 DAYS)
     Route: 042
     Dates: start: 20240201
  4. MESALAMINE [Concomitant]
     Active Substance: MESALAMINE
     Dosage: UNK
  5. PREDNISONE [Concomitant]
     Active Substance: PREDNISONE
     Dosage: 50 MG, DOSAGE FREQUENCY: UNKNOWN
     Route: 065
  6. TYLENOL [Concomitant]
     Active Substance: ACETAMINOPHEN
     Indication: Premedication
     Dosage: 650 MG, AS NEEDED
     Route: 048
     Dates: start: 20240201, end: 20240201

REACTIONS (6)
  - Ankle operation [Unknown]
  - Sinus headache [Recovered/Resolved]
  - Paranasal sinus discomfort [Recovered/Resolved]
  - Incision site cellulitis [Not Recovered/Not Resolved]
  - Post procedural infection [Recovered/Resolved]
  - Inappropriate schedule of product administration [Unknown]

NARRATIVE: CASE EVENT DATE: 20231208
